FAERS Safety Report 22050606 (Version 1)
Quarter: 2023Q1

REPORT INFORMATION
  Report Type: Spontaneous
  Country: US (occurrence: US)
  Receive Date: 20230301
  Receipt Date: 20230301
  Transmission Date: 20230417
  Serious: No
  Sender: FDA-Public Use
  Company Number: US-SA-SAC20230228001000

PATIENT
  Sex: Female

DRUGS (22)
  1. DUPIXENT [Suspect]
     Active Substance: DUPILUMAB
     Indication: Dermatitis atopic
     Dosage: 300 MG, QOW
     Route: 058
     Dates: start: 20221003
  2. PREDNISONE [Concomitant]
     Active Substance: PREDNISONE
     Dosage: UNK
  3. ALBUTEROL [Concomitant]
     Active Substance: ALBUTEROL
     Dosage: UNK
  4. ASPIRIN [Concomitant]
     Active Substance: ASPIRIN
  5. CLOPIDOGREL [Concomitant]
     Active Substance: CLOPIDOGREL BISULFATE
  6. DIAZEPAM [Concomitant]
     Active Substance: DIAZEPAM
  7. DULOXETINE [Concomitant]
     Active Substance: DULOXETINE
  8. FISH OIL [Concomitant]
     Active Substance: FISH OIL
  9. HYDROCODONE [Concomitant]
     Active Substance: HYDROCODONE
  10. INVOKAMET [Concomitant]
     Active Substance: CANAGLIFLOZIN\METFORMIN HYDROCHLORIDE
  11. IPRATROPIUM [Concomitant]
     Active Substance: IPRATROPIUM
  12. METOPROLOL [Concomitant]
     Active Substance: METOPROLOL
  13. ISOSORBIDE [Concomitant]
     Active Substance: ISOSORBIDE
  14. LIPITOR [Concomitant]
     Active Substance: ATORVASTATIN CALCIUM
  15. NOVOLIN 70/30 [Concomitant]
     Active Substance: INSULIN HUMAN
  16. PREGABALIN [Concomitant]
     Active Substance: PREGABALIN
  17. OMEPRAZOLE [Concomitant]
     Active Substance: OMEPRAZOLE
  18. SINGULAIR [Concomitant]
     Active Substance: MONTELUKAST SODIUM
  19. TRESIBA [Concomitant]
     Active Substance: INSULIN DEGLUDEC
  20. VITAMIN D2 [Concomitant]
     Active Substance: ERGOCALCIFEROL
  21. TACROLIMUS [Concomitant]
     Active Substance: TACROLIMUS
  22. VITAMIN B12 [Concomitant]
     Active Substance: CYANOCOBALAMIN

REACTIONS (4)
  - Migraine [Unknown]
  - Fungal infection [Unknown]
  - COVID-19 [Unknown]
  - Injection site reaction [Unknown]
